FAERS Safety Report 13123541 (Version 3)
Quarter: 2017Q2

REPORT INFORMATION
  Report Type: Report from Study
  Country: US (occurrence: US)
  Receive Date: 20170117
  Receipt Date: 20170412
  Transmission Date: 20170830
  Serious: Yes (Death, Hospitalization, Other)
  Sender: FDA-Public Use
  Company Number: US-ACTELION-A-US2017-148030

PATIENT
  Age: 73 Year
  Sex: Female
  Weight: 55.33 kg

DRUGS (1)
  1. VELETRI [Suspect]
     Active Substance: EPOPROSTENOL
     Indication: PULMONARY HYPERTENSION
     Dosage: 34 NG/KG, PER MIN
     Route: 042
     Dates: end: 20170406

REACTIONS (8)
  - Flushing [Unknown]
  - Malaise [Unknown]
  - Epistaxis [Unknown]
  - Seizure [Unknown]
  - Death [Fatal]
  - Respiratory distress [Unknown]
  - Condition aggravated [Unknown]
  - Headache [Unknown]

NARRATIVE: CASE EVENT DATE: 20170406
